FAERS Safety Report 23390068 (Version 3)
Quarter: 2024Q1

REPORT INFORMATION
  Report Type: Spontaneous
  Country: US (occurrence: US)
  Receive Date: 20240111
  Receipt Date: 20240117
  Transmission Date: 20240409
  Serious: No
  Sender: FDA-Public Use
  Company Number: US-BAUSCHBL-2024BNL000064

PATIENT
  Sex: Female

DRUGS (1)
  1. LOTEMAX [Suspect]
     Active Substance: LOTEPREDNOL ETABONATE
     Indication: Product used for unknown indication
     Route: 065

REACTIONS (6)
  - Dry eye [Unknown]
  - Product quality issue [Unknown]
  - Product colour issue [Unknown]
  - Poor quality product administered [Unknown]
  - Product availability issue [Unknown]
  - Product use issue [Unknown]
